FAERS Safety Report 11815036 (Version 1)
Quarter: 2015Q4

REPORT INFORMATION
  Report Type: Spontaneous
  Country: US (occurrence: US)
  Receive Date: 20151209
  Receipt Date: 20151209
  Transmission Date: 20160305
  Serious: No
  Sender: FDA-Public Use
  Company Number: US-SA-2015SA158405

PATIENT
  Age: 41 Year
  Sex: Female

DRUGS (3)
  1. NOVOLOG [Concomitant]
     Active Substance: INSULIN ASPART
  2. TOUJEO [Suspect]
     Active Substance: INSULIN GLARGINE
     Dosage: INJECTS TWICE DIALING UP TO 80 U AND REST INJECTING A SECOND TIME. (TOTAL DAILY DOSE: 100U PER DAY)
     Route: 065
     Dates: start: 20151002
  3. SOLOSTAR [Concomitant]
     Active Substance: DEVICE
     Dates: start: 20151002

REACTIONS (2)
  - Blood glucose increased [Unknown]
  - Drug administration error [Unknown]

NARRATIVE: CASE EVENT DATE: 2015
